FAERS Safety Report 5945606-3 (Version None)
Quarter: 2008Q4

REPORT INFORMATION
  Report Type: 
  Country: None (occurrence: None)
  Receive Date: 20081107
  Receipt Date: 20081030
  Transmission Date: 20090506
  Serious: Yes (Disabling)
  Sender: FDA-Public Use
  Company Number: US-ABBOTT-08P-163-0485116-00

PATIENT
  Sex: Male
  Weight: 76.272 kg

DRUGS (7)
  1. ZEMPLAR [Suspect]
     Indication: HYPERPARATHYROIDISM
     Route: 048
     Dates: start: 20081009, end: 20081031
  2. SIMVASTATIN [Concomitant]
     Indication: BLOOD CHOLESTEROL
     Route: 048
  3. SOTALOL HCL [Concomitant]
     Indication: CARDIAC DISORDER
     Route: 048
  4. TRAMADOL HYDROCHLORIDE [Concomitant]
     Indication: ARTHRALGIA
     Route: 048
  5. ALLOPURINOL [Concomitant]
     Indication: GOUT
     Route: 048
  6. ACETAMINOPHEN [Concomitant]
     Indication: ARTHRALGIA
     Route: 048
  7. DIOVAN HCT [Concomitant]
     Indication: BLOOD PRESSURE

REACTIONS (3)
  - BLINDNESS [None]
  - EYE HAEMORRHAGE [None]
  - VISION BLURRED [None]
